FAERS Safety Report 25990504 (Version 1)
Quarter: 2025Q4

REPORT INFORMATION
  Report Type: Spontaneous
  Country: EU (occurrence: EU)
  Receive Date: 20251103
  Receipt Date: 20251103
  Transmission Date: 20260117
  Serious: Yes (Hospitalization)
  Sender: AMGEN
  Company Number: None

PATIENT
  Age: 33 Year
  Sex: Male

DRUGS (2)
  1. OTEZLA [Suspect]
     Active Substance: APREMILAST
     Indication: Psoriasis
     Dosage: 1-0-1
     Route: 048
     Dates: start: 20190919
  2. MOMETASONE FUROATE [Concomitant]
     Active Substance: MOMETASONE FUROATE
     Indication: Psoriasis
     Dosage: AS NEEDED
     Route: 048
     Dates: start: 20250709

REACTIONS (2)
  - Meningitis meningococcal [Recovered/Resolved]
  - Arthritis reactive [Recovered/Resolved]

NARRATIVE: CASE EVENT DATE: 20250829
